FAERS Safety Report 9181994 (Version 1)
Quarter: 2012Q4

REPORT INFORMATION
  Report Type: 
  Country: US (occurrence: US)
  Receive Date: 20121030
  Receipt Date: 20121030
  Transmission Date: 20130627
  Serious: Yes (Hospitalization)
  Sender: FDA-Public Use
  Company Number: US-AMGEN-USASP2012068450

PATIENT
  Age: 80 Year
  Sex: Female

DRUGS (1)
  1. ENBREL [Suspect]
     Indication: RHEUMATOID ARTHRITIS
     Dosage: 50 mg, every other week
     Dates: start: 20030201

REACTIONS (3)
  - Shoulder arthroplasty [Recovered/Resolved]
  - Chondropathy [Recovered/Resolved]
  - Fall [Not Recovered/Not Resolved]
